FAERS Safety Report 18305950 (Version 1)
Quarter: 2020Q3

REPORT INFORMATION
  Report Type: Spontaneous
  Country: US (occurrence: US)
  Receive Date: 20200923
  Receipt Date: 20200923
  Transmission Date: 20201103
  Serious: Yes (Hospitalization)
  Sender: FDA-Public Use
  Company Number: None

PATIENT
  Age: 84 Year
  Sex: Male
  Weight: 82 kg

DRUGS (1)
  1. WARFARIN (WARFARIN NA (EXELAN) 2.5MG TAB) [Suspect]
     Active Substance: WARFARIN SODIUM
     Route: 048
     Dates: start: 19950105

REACTIONS (3)
  - International normalised ratio abnormal [None]
  - Melaena [None]
  - Drug interaction [None]

NARRATIVE: CASE EVENT DATE: 20191208
